FAERS Safety Report 7808646-5 (Version None)
Quarter: 2011Q4

REPORT INFORMATION
  Report Type: 
  Country: None (occurrence: None)
  Receive Date: 20111006
  Receipt Date: 20110920
  Transmission Date: 20120403
  Serious: Yes (Other)
  Sender: FDA-Public Use
  Company Number: 2011MA014204

PATIENT
  Age: 90 Year
  Sex: Male

DRUGS (1)
  1. CARBAMAZEPINE [Suspect]

REACTIONS (4)
  - CUTANEOUS LUPUS ERYTHEMATOSUS [None]
  - IMMUNOLOGY TEST ABNORMAL [None]
  - ERYTHEMA MULTIFORME [None]
  - ANTINUCLEAR ANTIBODY POSITIVE [None]
